FAERS Safety Report 24664994 (Version 1)
Quarter: 2024Q4

REPORT INFORMATION
  Report Type: Spontaneous
  Country: CN (occurrence: CN)
  Receive Date: 20241126
  Receipt Date: 20241126
  Transmission Date: 20250114
  Serious: Yes (Hospitalization, Disabling, Other)
  Sender: PFIZER
  Company Number: CN-PFIZER INC-PV202400152066

PATIENT
  Age: 88 Year
  Sex: Male
  Weight: 40 kg

DRUGS (2)
  1. ZYVOX [Suspect]
     Active Substance: LINEZOLID
     Indication: Chronic obstructive pulmonary disease
     Dosage: 1 DF, 2X/DAY
     Route: 048
     Dates: start: 20241025, end: 20241110
  2. FLUCONAZOLE [Concomitant]
     Active Substance: FLUCONAZOLE
     Indication: Chronic obstructive pulmonary disease
     Dosage: 1 DF, 1X/DAY
     Route: 048
     Dates: start: 20241003, end: 20241111

REACTIONS (2)
  - Renal impairment [Recovering/Resolving]
  - Hyperlactacidaemia [Recovering/Resolving]

NARRATIVE: CASE EVENT DATE: 20241111
